FAERS Safety Report 16031030 (Version 2)
Quarter: 2019Q2

REPORT INFORMATION
  Report Type: Spontaneous
  Country: CA (occurrence: CA)
  Receive Date: 20190304
  Receipt Date: 20190502
  Transmission Date: 20190711
  Serious: Yes (Hospitalization)
  Sender: FDA-Public Use
  Company Number: CA-PFIZER INC-2019087950

PATIENT
  Age: 55 Year
  Sex: Female

DRUGS (3)
  1. HYDROXYCHLOROQUINE [Concomitant]
     Active Substance: HYDROXYCHLOROQUINE
     Dosage: 300 MG, DAILY (QD)
     Route: 048
     Dates: start: 201807
  2. FOLIC ACID. [Concomitant]
     Active Substance: FOLIC ACID
     Dosage: UNK
  3. METHOTREXATE SODIUM. [Suspect]
     Active Substance: METHOTREXATE SODIUM
     Dosage: 25 MG,Q (EVERY) UNKNOWN
     Route: 058
     Dates: start: 201807

REACTIONS (3)
  - Gait disturbance [Unknown]
  - Cyst rupture [Unknown]
  - Therapeutic product effect incomplete [Unknown]
